FAERS Safety Report 4409905-9 (Version None)
Quarter: 2004Q3

REPORT INFORMATION
  Report Type: 
  Country: None (occurrence: None)
  Receive Date: 20040726
  Receipt Date: 20040709
  Transmission Date: 20050211
  Serious: Yes (Hospitalization)
  Sender: FDA-Public Use
  Company Number: F01200400650

PATIENT
  Age: 73 Year
  Sex: Female

DRUGS (9)
  1. (OXALIPLATIN) - SOLUTION - 85 MG/M2 [Suspect]
     Indication: COLORECTAL CANCER
     Dosage: 85 MG/M2 Q2W, INTRAVENOUS NOS
     Route: 042
     Dates: start: 20040318, end: 20040318
  2. FLUOROURACIL [Suspect]
     Dosage: 400 MG/M2 BOLUS THEN 2400 MG/M2 AS 46 HOURS INFUSION Q2W, INTRAVENOUS NOS
     Route: 042
     Dates: start: 20040318, end: 20040318
  3. LEUCOVORIN CALCIUM [Suspect]
     Dosage: 350 MG Q2W, INTRAVENOUS NOS
     Route: 042
     Dates: start: 20040318, end: 20040318
  4. AVASTIN [Suspect]
     Dosage: 5 MG/KG Q2W, INTRAVENOUS NOS
     Route: 042
     Dates: start: 20040318, end: 20040318
  5. TYLENOL [Concomitant]
  6. ANZEMET (DOLASETRON MESILATE) [Concomitant]
  7. DECADRON [Concomitant]
  8. ZOFRAN [Concomitant]
  9. DARVOCET (DEXTROPROPOXYPHEN NAPSILATE+PARACETAMOL) [Concomitant]

REACTIONS (6)
  - ABDOMINAL PAIN [None]
  - DEHYDRATION [None]
  - DIARRHOEA [None]
  - METASTASES TO LUNG [None]
  - NAUSEA [None]
  - WEIGHT DECREASED [None]
